FAERS Safety Report 4979756-5 (Version None)
Quarter: 2006Q2

REPORT INFORMATION
  Report Type: 
  Country: None (occurrence: None)
  Receive Date: 20060418
  Receipt Date: 20060410
  Transmission Date: 20061013
  Serious: Yes (Disabling, Other)
  Sender: FDA-Public Use
  Company Number: 2006034378

PATIENT
  Sex: Female

DRUGS (8)
  1. NEURONTIN [Suspect]
     Indication: DIABETIC NEUROPATHY
     Dosage: 600 MG (300 MG, 2 IN 1 D)
     Dates: start: 20030101, end: 20050101
  2. VISTARIL [Suspect]
     Indication: ANXIETY
     Dosage: DAILY
     Dates: start: 20030101, end: 20060301
  3. VISTARIL [Suspect]
     Indication: DIABETIC NEUROPATHY
     Dosage: DAILY
     Dates: start: 20030101, end: 20060301
  4. AVANDAMET [Concomitant]
  5. NEXIUM [Concomitant]
  6. LISINOPRIL [Concomitant]
  7. WELLBUTRIN XL [Concomitant]
  8. ELAVIL [Concomitant]

REACTIONS (4)
  - ANXIETY [None]
  - CONDITION AGGRAVATED [None]
  - DIABETIC NEUROPATHY [None]
  - TREATMENT NONCOMPLIANCE [None]
